FAERS Safety Report 14165903 (Version 1)
Quarter: 2017Q4

REPORT INFORMATION
  Report Type: Spontaneous
  Country: DK (occurrence: DK)
  Receive Date: 20171107
  Receipt Date: 20171107
  Transmission Date: 20180321
  Serious: Yes (Death, Other)
  Sender: FDA-Public Use
  Company Number: DK-GILEAD-2017-0302825

PATIENT
  Age: 57 Year
  Sex: Male

DRUGS (10)
  1. FURIX [Concomitant]
     Active Substance: FUROSEMIDE
  2. SPIRON                             /00006201/ [Concomitant]
     Active Substance: SPIRONOLACTONE
  3. KALEORID [Concomitant]
     Active Substance: POTASSIUM CHLORIDE
  4. METFORMIN BLUEFISH                 /00082701/ [Concomitant]
  5. PROPRANOLOL [Concomitant]
     Active Substance: PROPRANOLOL HYDROCHLORIDE
  6. LANSOPRAZOL KRKA [Concomitant]
  7. NITROGLYCERIN DAK [Concomitant]
  8. NOZINAN                            /00038601/ [Concomitant]
     Active Substance: LEVOMEPROMAZINE
  9. HARVONI [Suspect]
     Active Substance: LEDIPASVIR\SOFOSBUVIR
     Indication: CHRONIC HEPATITIS C
     Dosage: 1 DF, QD
     Route: 048
     Dates: start: 20160613, end: 20160906
  10. HJERTEMAGNYL                       /00002701/ [Concomitant]
     Active Substance: ASPIRIN

REACTIONS (5)
  - General physical health deterioration [Not Recovered/Not Resolved]
  - Sensory disturbance [Unknown]
  - Back pain [Unknown]
  - Metastatic renal cell carcinoma [Fatal]
  - Renal cell carcinoma [Fatal]

NARRATIVE: CASE EVENT DATE: 201708
